FAERS Safety Report 8818594 (Version 1)
Quarter: 2012Q4

REPORT INFORMATION
  Report Type: Spontaneous
  Country: US (occurrence: None)
  Receive Date: 20121004
  Receipt Date: 20121004
  Transmission Date: 20130627
  Serious: Yes (Other)
  Sender: FDA-Public Use
  Company Number: None

PATIENT
  Sex: Male
  Weight: 90.72 kg

DRUGS (1)
  1. MATZIM LA [Suspect]
     Indication: BLOOD PRESSURE HIGH
     Dosage: 1 day
     Route: 048
     Dates: start: 20120731, end: 20120915

REACTIONS (7)
  - Dyspnoea [None]
  - Agitation [None]
  - Dyspepsia [None]
  - Eructation [None]
  - Dizziness [None]
  - Dizziness [None]
  - Unevaluable event [None]
